FAERS Safety Report 6320702-X (Version None)
Quarter: 2009Q3

REPORT INFORMATION
  Report Type: 
  Country: None (occurrence: None)
  Receive Date: 20090822
  Receipt Date: 20081201
  Transmission Date: 20100115
  Serious: No
  Sender: FDA-Public Use
  Company Number: US-ABBOTT-08P-163-0490343-00

PATIENT
  Sex: Male
  Weight: 72.64 kg

DRUGS (7)
  1. NIASPAN [Suspect]
     Indication: HIGH DENSITY LIPOPROTEIN DECREASED
     Route: 048
     Dates: start: 20080101, end: 20080101
  2. NIASPAN [Suspect]
     Route: 048
     Dates: start: 20080101, end: 20081128
  3. PLAVIX [Concomitant]
     Indication: CORONARY ARTERIAL STENT INSERTION
  4. AMLODIPINE [Concomitant]
     Indication: HYPERTENSION
  5. LIPITOR [Concomitant]
     Indication: BLOOD CHOLESTEROL INCREASED
  6. METOPROLOL [Concomitant]
     Indication: HYPERTENSION
  7. TEKTURNA [Concomitant]
     Indication: HYPERTENSION

REACTIONS (4)
  - FLUSHING [None]
  - FORMICATION [None]
  - PRURITUS [None]
  - RASH [None]
